FAERS Safety Report 6992985-4 (Version None)
Quarter: 2010Q3

REPORT INFORMATION
  Report Type: 
  Country: None (occurrence: None)
  Receive Date: 20100917
  Receipt Date: 20100915
  Transmission Date: 20110219
  Serious: Yes (Other)
  Sender: FDA-Public Use
  Company Number: GR-BRISTOL-MYERS SQUIBB COMPANY-15278039

PATIENT
  Age: 49 Year
  Sex: Female
  Weight: 42 kg

DRUGS (10)
  1. TAXOL [Suspect]
     Route: 042
     Dates: start: 20070509, end: 20070606
  2. CYCLOPHOSPHAMIDE [Suspect]
     Route: 042
     Dates: start: 20070620, end: 20070718
  3. METHOTREXATE [Suspect]
  4. FLUOROURACIL [Suspect]
     Dosage: 20JUN07 1ST THERAPY 4JUL07  2ND THERAPY 18JUL07 3RD THERAPY
     Dates: start: 20070620, end: 20070718
  5. EPREX [Concomitant]
     Dates: start: 20070509, end: 20070704
  6. ONDANSETRON HCL [Concomitant]
     Dates: start: 20070329, end: 20070718
  7. DEXAMETHASONE [Concomitant]
     Dates: start: 20070606, end: 20070718
  8. FENISTIL [Concomitant]
  9. EFFEXOR [Concomitant]
  10. FLUIMUCIL [Concomitant]

REACTIONS (1)
  - PERIPHERAL SENSORY NEUROPATHY [None]
